FAERS Safety Report 4340832-1 (Version None)
Quarter: 2004Q2

REPORT INFORMATION
  Report Type: 
  Country: None (occurrence: None)
  Receive Date: 20040419
  Receipt Date: 20031120
  Transmission Date: 20050107
  Serious: No
  Sender: FDA-Public Use
  Company Number: US-GLAXOSMITHKLINE-A0440598A

PATIENT
  Age: 56 Year
  Sex: Male

DRUGS (3)
  1. ESKALITH [Suspect]
     Route: 048
  2. INSULIN [Concomitant]
  3. BLOOD PRESSURE MEDICATION [Concomitant]

REACTIONS (1)
  - BLOOD CALCIUM INCREASED [None]
